FAERS Safety Report 12670386 (Version 1)
Quarter: 2016Q3

REPORT INFORMATION
  Report Type: Spontaneous
  Country: US (occurrence: US)
  Receive Date: 20160822
  Receipt Date: 20160822
  Transmission Date: 20161109
  Serious: No
  Sender: FDA-Public Use
  Company Number: US-GLAXOSMITHKLINE-CHPA2016US001868

PATIENT
  Age: 37 Year
  Sex: Female

DRUGS (1)
  1. EXCEDRIN MIGRAINE [Suspect]
     Active Substance: ACETAMINOPHEN\ASPIRIN\CAFFEINE
     Indication: EYE PAIN
     Dosage: 2 DF, BID
     Route: 048
     Dates: start: 20160201

REACTIONS (3)
  - Product use issue [Unknown]
  - Incorrect dose administered [Unknown]
  - Drug ineffective for unapproved indication [Unknown]
